FAERS Safety Report 8104418-5 (Version None)
Quarter: 2012Q1

REPORT INFORMATION
  Report Type: 
  Country: None (occurrence: None)
  Receive Date: 20120130
  Receipt Date: 20120125
  Transmission Date: 20120608
  Serious: Yes (Hospitalization)
  Sender: FDA-Public Use
  Company Number: US-GILEAD-2012-0048845

PATIENT
  Sex: Female

DRUGS (4)
  1. LETAIRIS [Suspect]
     Indication: PULMONARY HYPERTENSION
     Dosage: 5 MG, UNK
     Route: 048
     Dates: start: 20110623
  2. TYVASO [Concomitant]
  3. ADCIRCA [Concomitant]
  4. LETAIRIS [Suspect]
     Indication: CONNECTIVE TISSUE DISORDER

REACTIONS (1)
  - PNEUMONIA [None]
